FAERS Safety Report 7481064-8 (Version None)
Quarter: 2011Q2

REPORT INFORMATION
  Report Type: 
  Country: None (occurrence: None)
  Receive Date: 20110505
  Receipt Date: 20110428
  Transmission Date: 20111010
  Serious: Yes (Hospitalization, Other)
  Sender: FDA-Public Use
  Company Number: 2010SP014822

PATIENT
  Age: 32 Year
  Sex: Female
  Weight: 113.3993 kg

DRUGS (7)
  1. FIORICET [Concomitant]
  2. IBUPROFEN [Concomitant]
  3. COUMADIN [Suspect]
     Indication: ANTICOAGULANT THERAPY
     Dates: start: 20080308, end: 20080308
  4. ZYRTEC [Suspect]
     Indication: HYPERSENSITIVITY
     Dates: start: 20080301
  5. NUVARING [Suspect]
     Indication: MIGRAINE
     Dates: start: 20060101, end: 20080301
  6. NUVARING [Suspect]
     Indication: CONTRACEPTION
     Dates: start: 20060101, end: 20080301
  7. LOVENOX [Suspect]
     Indication: ANTICOAGULANT THERAPY
     Dates: start: 20080306

REACTIONS (32)
  - PAIN [None]
  - ABORTION INDUCED [None]
  - PERFUME SENSITIVITY [None]
  - DYSPNOEA [None]
  - OVARIAN CYST [None]
  - VENTRICULAR HYPOKINESIA [None]
  - HEADACHE [None]
  - DRUG EXPOSURE BEFORE PREGNANCY [None]
  - MIGRAINE [None]
  - MUSCLE SPASMS [None]
  - PULMONARY INFARCTION [None]
  - MULTIPLE INJURIES [None]
  - HYPERCOAGULATION [None]
  - RESPIRATORY FAILURE [None]
  - CARDIAC DISORDER [None]
  - BREAST CYST [None]
  - IRON DEFICIENCY ANAEMIA [None]
  - PARATHYROID DISORDER [None]
  - PREGNANCY [None]
  - CONTUSION [None]
  - THROMBOCYTOPENIA [None]
  - CHEST PAIN [None]
  - ADHESION [None]
  - ADRENAL DISORDER [None]
  - HYPOTHALAMO-PITUITARY DISORDER [None]
  - DRUG HYPERSENSITIVITY [None]
  - URTICARIA [None]
  - PANCREATIC DISORDER [None]
  - PULMONARY EMBOLISM [None]
  - DEEP VEIN THROMBOSIS [None]
  - ECCHYMOSIS [None]
  - CAESAREAN SECTION [None]
